FAERS Safety Report 10511705 (Version 1)
Quarter: 2014Q4

REPORT INFORMATION
  Report Type: Spontaneous
  Country: US (occurrence: US)
  Receive Date: 20141010
  Receipt Date: 20141010
  Transmission Date: 20150528
  Serious: Yes (Hospitalization)
  Sender: FDA-Public Use
  Company Number: US-BAYER-2014-149236

PATIENT
  Sex: Male

DRUGS (1)
  1. BAYER LOW DOSE [Suspect]
     Active Substance: ASPIRIN
     Dosage: 0.5 DF, QD
     Route: 048

REACTIONS (3)
  - Ulcer haemorrhage [Recovered/Resolved]
  - Gastrointestinal inflammation [Recovered/Resolved]
  - Ulcer [Unknown]
